FAERS Safety Report 13338753 (Version 1)
Quarter: 2017Q1

REPORT INFORMATION
  Report Type: Spontaneous
  Country: US (occurrence: US)
  Receive Date: 20170315
  Receipt Date: 20170315
  Transmission Date: 20170428
  Serious: Yes (Death, Other)
  Sender: FDA-Public Use
  Company Number: US-PFIZER INC-3128452

PATIENT
  Age: 24 Year
  Sex: Female

DRUGS (52)
  1. CEFTRIAXONE SODIUM. [Suspect]
     Active Substance: CEFTRIAXONE SODIUM
     Indication: PRODUCT USED FOR UNKNOWN INDICATION
     Dosage: UNK
     Dates: start: 20131101
  2. CEFTRIAXONE SODIUM. [Interacting]
     Active Substance: CEFTRIAXONE SODIUM
     Indication: NAUSEA
  3. CIPROFLOXACIN. [Interacting]
     Active Substance: CIPROFLOXACIN
     Indication: RHEUMATOID ARTHRITIS
  4. PIPERACILLIN/TAZOBACTAM [Interacting]
     Active Substance: PIPERACILLIN SODIUM\TAZOBACTAM SODIUM
     Indication: RHEUMATOID ARTHRITIS
  5. BD POSIFLUSH [Interacting]
     Active Substance: SODIUM CHLORIDE
     Indication: PRODUCT USED FOR UNKNOWN INDICATION
     Dosage: UNK
     Dates: start: 20131101
  6. BD POSIFLUSH [Interacting]
     Active Substance: SODIUM CHLORIDE
     Indication: NAUSEA
  7. BENADRYL [Interacting]
     Active Substance: DIPHENHYDRAMINE HYDROCHLORIDE
     Indication: INFECTION
  8. MAGNESIUM SULFATE. [Interacting]
     Active Substance: MAGNESIUM SULFATE
     Indication: NAUSEA
  9. ZOFRAN [Interacting]
     Active Substance: ONDANSETRON HYDROCHLORIDE
     Indication: PRODUCT USED FOR UNKNOWN INDICATION
     Dosage: UNK
     Dates: start: 20131101
  10. CEFTRIAXONE SODIUM. [Interacting]
     Active Substance: CEFTRIAXONE SODIUM
     Indication: INFECTION
  11. HYDROMORPHONE HYDROCHLORIDE. [Interacting]
     Active Substance: HYDROMORPHONE HYDROCHLORIDE
     Indication: INFECTION
  12. HYDROMORPHONE HYDROCHLORIDE. [Interacting]
     Active Substance: HYDROMORPHONE HYDROCHLORIDE
     Indication: NAUSEA
  13. METRONIDAZOLE. [Interacting]
     Active Substance: METRONIDAZOLE
     Indication: RHEUMATOID ARTHRITIS
  14. BENADRYL [Interacting]
     Active Substance: DIPHENHYDRAMINE HYDROCHLORIDE
     Indication: PRODUCT USED FOR UNKNOWN INDICATION
     Dosage: UNK
     Dates: start: 20131101
  15. DEXTROSE SALINE [Interacting]
     Active Substance: DEXTROSE\SODIUM CHLORIDE
     Indication: RHEUMATOID ARTHRITIS
  16. ZOFRAN [Interacting]
     Active Substance: ONDANSETRON HYDROCHLORIDE
     Indication: RHEUMATOID ARTHRITIS
  17. CIPROFLOXACIN. [Interacting]
     Active Substance: CIPROFLOXACIN
     Indication: PRODUCT USED FOR UNKNOWN INDICATION
     Dosage: UNK
     Dates: start: 20131101
  18. CIPROFLOXACIN. [Interacting]
     Active Substance: CIPROFLOXACIN
     Indication: INFECTION
  19. PIPERACILLIN/TAZOBACTAM [Interacting]
     Active Substance: PIPERACILLIN SODIUM\TAZOBACTAM SODIUM
     Indication: PRODUCT USED FOR UNKNOWN INDICATION
     Dosage: UNK
     Dates: start: 20131101
  20. BD POSIFLUSH [Interacting]
     Active Substance: SODIUM CHLORIDE
     Indication: INFECTION
  21. BD POSIFLUSH [Interacting]
     Active Substance: SODIUM CHLORIDE
     Indication: RHEUMATOID ARTHRITIS
  22. BENADRYL [Interacting]
     Active Substance: DIPHENHYDRAMINE HYDROCHLORIDE
     Indication: NAUSEA
  23. HUMIRA [Interacting]
     Active Substance: ADALIMUMAB
     Indication: PRODUCT USED FOR UNKNOWN INDICATION
     Dosage: UNK
     Dates: start: 20131101
  24. MAGNESIUM SULFATE. [Interacting]
     Active Substance: MAGNESIUM SULFATE
     Indication: RHEUMATOID ARTHRITIS
  25. ZOFRAN [Interacting]
     Active Substance: ONDANSETRON HYDROCHLORIDE
     Indication: NAUSEA
  26. PIPERACILLIN/TAZOBACTAM [Interacting]
     Active Substance: PIPERACILLIN SODIUM\TAZOBACTAM SODIUM
     Indication: INFECTION
  27. PIPERACILLIN/TAZOBACTAM [Interacting]
     Active Substance: PIPERACILLIN SODIUM\TAZOBACTAM SODIUM
     Indication: NAUSEA
  28. HUMIRA [Interacting]
     Active Substance: ADALIMUMAB
     Indication: INFECTION
  29. MAGNESIUM SULFATE. [Interacting]
     Active Substance: MAGNESIUM SULFATE
     Indication: PRODUCT USED FOR UNKNOWN INDICATION
     Dosage: UNK
     Dates: start: 20131101
  30. SALINE /00075401/ [Interacting]
     Active Substance: SODIUM CHLORIDE
     Indication: RHEUMATOID ARTHRITIS
  31. CEFTRIAXONE SODIUM. [Interacting]
     Active Substance: CEFTRIAXONE SODIUM
     Indication: RHEUMATOID ARTHRITIS
  32. CIPROFLOXACIN. [Interacting]
     Active Substance: CIPROFLOXACIN
     Indication: NAUSEA
  33. HYDROMORPHONE HYDROCHLORIDE. [Interacting]
     Active Substance: HYDROMORPHONE HYDROCHLORIDE
     Indication: RHEUMATOID ARTHRITIS
  34. METRONIDAZOLE. [Interacting]
     Active Substance: METRONIDAZOLE
     Indication: INFECTION
  35. DEXTROSE SALINE [Interacting]
     Active Substance: DEXTROSE\SODIUM CHLORIDE
     Indication: NAUSEA
  36. HUMIRA [Interacting]
     Active Substance: ADALIMUMAB
     Indication: NAUSEA
  37. SALINE /00075401/ [Interacting]
     Active Substance: SODIUM CHLORIDE
     Indication: INFECTION
  38. DIPHENHYDRAMINE HCL [Suspect]
     Active Substance: DIPHENHYDRAMINE HYDROCHLORIDE
     Dosage: UNK
  39. BENADRYL [Interacting]
     Active Substance: DIPHENHYDRAMINE HYDROCHLORIDE
     Indication: RHEUMATOID ARTHRITIS
  40. DEXTROSE SALINE [Interacting]
     Active Substance: DEXTROSE\SODIUM CHLORIDE
     Indication: PRODUCT USED FOR UNKNOWN INDICATION
     Dosage: UNK
     Dates: start: 20131101
  41. MAGNESIUM SULFATE. [Interacting]
     Active Substance: MAGNESIUM SULFATE
     Indication: INFECTION
  42. HYDROMORPHONE HYDROCHLORIDE. [Interacting]
     Active Substance: HYDROMORPHONE HYDROCHLORIDE
     Indication: PRODUCT USED FOR UNKNOWN INDICATION
     Dosage: UNK
     Dates: start: 20131101
  43. METRONIDAZOLE. [Interacting]
     Active Substance: METRONIDAZOLE
     Indication: NAUSEA
  44. PROTONIX [Suspect]
     Active Substance: PANTOPRAZOLE SODIUM
     Dosage: UNK
  45. DEXTROSE SALINE [Interacting]
     Active Substance: DEXTROSE\SODIUM CHLORIDE
     Indication: INFECTION
  46. METRONIDAZOLE. [Interacting]
     Active Substance: METRONIDAZOLE
     Indication: PRODUCT USED FOR UNKNOWN INDICATION
     Dosage: UNK
     Dates: start: 20131101
  47. SOLU-MEDROL [Suspect]
     Active Substance: METHYLPREDNISOLONE SODIUM SUCCINATE
     Dosage: UNK
  48. SODIUM BICARBONATE. [Suspect]
     Active Substance: SODIUM BICARBONATE
     Dosage: UNK
  49. HUMIRA [Interacting]
     Active Substance: ADALIMUMAB
     Indication: RHEUMATOID ARTHRITIS
  50. SALINE /00075401/ [Interacting]
     Active Substance: SODIUM CHLORIDE
     Indication: PRODUCT USED FOR UNKNOWN INDICATION
     Dosage: UNK
     Dates: start: 20131101
  51. SALINE /00075401/ [Interacting]
     Active Substance: SODIUM CHLORIDE
     Indication: NAUSEA
  52. ZOFRAN [Interacting]
     Active Substance: ONDANSETRON HYDROCHLORIDE
     Indication: INFECTION

REACTIONS (9)
  - Hypotension [Fatal]
  - Vasculitis [Unknown]
  - Pulmonary vascular disorder [Fatal]
  - Immunodeficiency [Unknown]
  - Phlebitis [Unknown]
  - Respiratory distress [Fatal]
  - Drug interaction [Unknown]
  - Product contamination physical [Fatal]
  - Product label issue [Unknown]

NARRATIVE: CASE EVENT DATE: 20131101
